FAERS Safety Report 8816571 (Version 1)
Quarter: 2012Q4

REPORT INFORMATION
  Report Type: Spontaneous
  Country: US (occurrence: None)
  Receive Date: 20121001
  Receipt Date: 20121001
  Transmission Date: 20130627
  Serious: Yes (Life-Threatening, Hospitalization)
  Sender: FDA-Public Use
  Company Number: None

PATIENT
  Age: 40 Year
  Sex: Male
  Weight: 71.2 kg

DRUGS (1)
  1. TESTOSTERONE [Suspect]
     Indication: MUSCLE BUILDING THERAPY
     Dates: start: 20120601, end: 20120630

REACTIONS (6)
  - Pulmonary embolism [None]
  - Headache [None]
  - Nausea [None]
  - Diarrhoea [None]
  - Pyrexia [None]
  - Polycythaemia [None]
